FAERS Safety Report 7544951-8 (Version None)
Quarter: 2011Q2

REPORT INFORMATION
  Report Type: 
  Country: None (occurrence: None)
  Receive Date: 20110614
  Receipt Date: 20091226
  Transmission Date: 20111010
  Serious: Yes (Death, Hospitalization, Other)
  Sender: FDA-Public Use
  Company Number: US-BAYER-200943547NA

PATIENT
  Age: 70 Year
  Sex: Female
  Weight: 68.027 kg

DRUGS (1)
  1. TRASYLOL [Suspect]
     Indication: CARDIAC OPERATION
     Dosage: UNK
     Route: 042
     Dates: start: 19980310

REACTIONS (6)
  - INJURY [None]
  - UNEVALUABLE EVENT [None]
  - DEATH [None]
  - PAIN [None]
  - RENAL INJURY [None]
  - RENAL FAILURE [None]
